FAERS Safety Report 11137425 (Version 1)
Quarter: 2015Q2

REPORT INFORMATION
  Report Type: Spontaneous
  Country: US (occurrence: US)
  Receive Date: 20150526
  Receipt Date: 20150526
  Transmission Date: 20150821
  Serious: No
  Sender: FDA-Public Use
  Company Number: US-PFIZER INC-2015173923

PATIENT
  Age: 24 Year
  Sex: Female

DRUGS (1)
  1. GENOTROPIN [Suspect]
     Active Substance: SOMATROPIN
     Indication: HYPOPITUITARISM
     Dosage: 2 MG, 6XWEEK
     Route: 058
     Dates: start: 20141210

REACTIONS (7)
  - Pain [Unknown]
  - Diarrhoea [Unknown]
  - Pyrexia [Unknown]
  - Lymphadenopathy [Unknown]
  - Malaise [Unknown]
  - Lymph node pain [Unknown]
  - Influenza like illness [Unknown]

NARRATIVE: CASE EVENT DATE: 201505
